FAERS Safety Report 7446047-2 (Version None)
Quarter: 2011Q2

REPORT INFORMATION
  Report Type: 
  Country: None (occurrence: None)
  Receive Date: 20110429
  Receipt Date: 20110425
  Transmission Date: 20111010
  Serious: Yes (Hospitalization)
  Sender: FDA-Public Use
  Company Number: US-PFIZER INC-2011088860

PATIENT
  Sex: Female

DRUGS (22)
  1. LORAZEPAM [Concomitant]
     Dosage: UNK
     Dates: start: 20110331, end: 20110331
  2. CELEXA [Concomitant]
  3. ZOLPIDEM TARTRATE [Concomitant]
  4. KAOPECTATE [Concomitant]
  5. LEVAQUIN [Concomitant]
     Dosage: UNK
     Dates: start: 20110324
  6. DEXAMETHASONE [Concomitant]
     Dosage: UNK
     Dates: start: 20110331, end: 20110403
  7. SOLU-CORTEF [Concomitant]
     Dosage: UNK
     Dates: start: 20110331, end: 20110331
  8. DITROPAN XL [Concomitant]
  9. CYTOXAN [Suspect]
     Indication: BREAST CANCER
     Dosage: 1296 MG, UNK
     Route: 042
     Dates: start: 20110310, end: 20110331
  10. XANAX [Concomitant]
  11. ACETAMINOPHEN [Concomitant]
  12. OMEPRAZOLE [Concomitant]
  13. EXCEDRIN (MIGRAINE) [Concomitant]
  14. FAMOTIDINE [Concomitant]
  15. CLONAZEPAM [Concomitant]
  16. COMPAZINE [Concomitant]
  17. ADRIAMYCIN PFS [Suspect]
     Indication: BREAST CANCER
     Dosage: 130 MG, UNK
     Route: 042
     Dates: start: 20110310, end: 20110331
  18. ZANTAC [Concomitant]
  19. IMODIUM [Concomitant]
  20. EMEND [Concomitant]
     Dosage: UNK
     Dates: start: 20110331, end: 20110402
  21. LACTOBACILLUS ACIDOPHILUS [Concomitant]
  22. LAMICTAL [Concomitant]

REACTIONS (1)
  - FEBRILE NEUTROPENIA [None]
